FAERS Safety Report 9398511 (Version 1)
Quarter: 2013Q3

REPORT INFORMATION
  Report Type: Spontaneous
  Country: BE (occurrence: BE)
  Receive Date: 20130712
  Receipt Date: 20130712
  Transmission Date: 20140515
  Serious: Yes (Life-Threatening, Hospitalization, Other)
  Sender: FDA-Public Use
  Company Number: BE-BRISTOL-MYERS SQUIBB COMPANY-19097526

PATIENT
  Age: 83 Year
  Sex: Male

DRUGS (7)
  1. GLUCOPHAGE [Suspect]
     Route: 048
     Dates: start: 2010, end: 201306
  2. DICLOFENAC SODIUM [Suspect]
     Indication: GOUTY ARTHRITIS
     Route: 048
     Dates: start: 20130522, end: 201306
  3. NEBIVOLOL + HCTZ [Suspect]
     Dosage: NEBIVOLOL 5 MG + HCTZ 25 MG. 1DF: 5-25 MG
     Route: 048
     Dates: end: 201306
  4. BURINEX [Suspect]
     Route: 048
     Dates: end: 201306
  5. ASAFLOW [Concomitant]
     Route: 048
  6. LESCOL [Concomitant]
     Indication: HYPERTRIGLYCERIDAEMIA
     Route: 048
  7. OMEPRAZOLE [Concomitant]
     Route: 048

REACTIONS (5)
  - Dehydration [Unknown]
  - Renal failure acute [Recovering/Resolving]
  - Toxicity to various agents [Recovering/Resolving]
  - Lactic acidosis [Recovering/Resolving]
  - Gouty arthritis [Unknown]
